FAERS Safety Report 16880440 (Version 1)
Quarter: 2019Q4

REPORT INFORMATION
  Report Type: Spontaneous
  Country: IT (occurrence: IT)
  Receive Date: 20191003
  Receipt Date: 20191003
  Transmission Date: 20200122
  Serious: Yes (Disabling)
  Sender: FDA-Public Use
  Company Number: IT-009507513-1909ITA008644

PATIENT
  Age: 33 Year
  Sex: Female
  Weight: 58 kg

DRUGS (3)
  1. SONGAR [Concomitant]
     Active Substance: TRIAZOLAM
     Dosage: UNK
  2. REMERON [Suspect]
     Active Substance: MIRTAZAPINE
     Dosage: UNK
  3. STILNOX [Concomitant]
     Active Substance: ZOLPIDEM TARTRATE
     Dosage: UNK

REACTIONS (5)
  - Choking sensation [Unknown]
  - Nausea [Unknown]
  - Tremor [Unknown]
  - Abdominal pain [Unknown]
  - Diplegia [Unknown]

NARRATIVE: CASE EVENT DATE: 20190828
